FAERS Safety Report 6197949-9 (Version None)
Quarter: 2009Q2

REPORT INFORMATION
  Report Type: 
  Country: None (occurrence: None)
  Receive Date: 20090521
  Receipt Date: 20090513
  Transmission Date: 20091009
  Serious: Yes (Hospitalization)
  Sender: FDA-Public Use
  Company Number: B0569584A

PATIENT
  Sex: Male
  Weight: 56 kg

DRUGS (4)
  1. ZOVIRAX [Suspect]
     Indication: HERPES ZOSTER
     Route: 042
     Dates: start: 20090326, end: 20090404
  2. CYANOCOBALAMIN [Concomitant]
     Indication: NEUROPATHY PERIPHERAL
     Dosage: 1500MCG PER DAY
     Route: 048
     Dates: start: 20090326
  3. LOXONIN [Concomitant]
     Indication: PAIN
     Dosage: 180MG PER DAY
     Route: 048
     Dates: start: 20090326, end: 20090331
  4. MUCOSTA [Concomitant]
     Indication: GASTRITIS
     Dosage: 300MG PER DAY
     Route: 048
     Dates: start: 20090326, end: 20090331

REACTIONS (3)
  - DISCOMFORT [None]
  - NAUSEA [None]
  - RENAL FAILURE ACUTE [None]
